FAERS Safety Report 5106490-3 (Version None)
Quarter: 2006Q3

REPORT INFORMATION
  Report Type: 
  Country: None (occurrence: None)
  Receive Date: 20060912
  Receipt Date: 20060828
  Transmission Date: 20061208
  Serious: Yes (Other)
  Sender: FDA-Public Use
  Company Number: JP200607003118

PATIENT
  Age: 50 Year
  Sex: Male

DRUGS (2)
  1. GEMZAR [Suspect]
     Indication: MESOTHELIOMA MALIGNANT
  2. CISPLATIN [Concomitant]

REACTIONS (1)
  - METASTASES TO MENINGES [None]
